FAERS Safety Report 6636073-5 (Version None)
Quarter: 2010Q1

REPORT INFORMATION
  Report Type: 
  Country: None (occurrence: None)
  Receive Date: 20100310
  Receipt Date: 20100223
  Transmission Date: 20100710
  Serious: Yes (Hospitalization)
  Sender: FDA-Public Use
  Company Number: AUR-APL-2010-00560

PATIENT
  Sex: Male

DRUGS (3)
  1. SIMVASTATIN [Suspect]
     Indication: ARTERIOSCLEROSIS
     Dosage: 80MG-QD-ORAL
     Route: 048
  2. DILTIAZEM HCL [Suspect]
     Dosage: 90MG-BID-ORAL
     Route: 048
  3. SANDIMMUNE [Suspect]
     Indication: HEART TRANSPLANT
     Dosage: 75MG-BID-ORAL
     Dates: start: 20030101

REACTIONS (2)
  - NAUSEA [None]
  - SOMNOLENCE [None]
